FAERS Safety Report 18012350 (Version 1)
Quarter: 2020Q3

REPORT INFORMATION
  Report Type: Spontaneous
  Country: US (occurrence: US)
  Receive Date: 20200710
  Receipt Date: 20200710
  Transmission Date: 20201103
  Serious: No
  Sender: FDA-Public Use
  Company Number: None

PATIENT
  Sex: Male

DRUGS (2)
  1. LABETALOL [Suspect]
     Active Substance: LABETALOL\LABETALOL HYDROCHLORIDE
  2. LAMOTRIGINE. [Suspect]
     Active Substance: LAMOTRIGINE

REACTIONS (10)
  - Product dispensing error [None]
  - Fall [None]
  - Vomiting [None]
  - Gait disturbance [None]
  - Skin laceration [None]
  - Nausea [None]
  - Malaise [None]
  - Wrong product administered [None]
  - Confusional state [None]
  - Asthenia [None]
